FAERS Safety Report 18828045 (Version 1)
Quarter: 2021Q1

REPORT INFORMATION
  Report Type: Spontaneous
  Country: US (occurrence: US)
  Receive Date: 20210201
  Receipt Date: 20210201
  Transmission Date: 20210419
  Serious: No
  Sender: FDA-Public Use
  Company Number: US-ABBVIE-20K-163-3495782-00

PATIENT
  Sex: Female

DRUGS (1)
  1. HUMIRA [Suspect]
     Active Substance: ADALIMUMAB
     Indication: HIDRADENITIS
     Route: 058
     Dates: start: 202006

REACTIONS (6)
  - Throat irritation [Recovering/Resolving]
  - Peripheral swelling [Recovered/Resolved]
  - Asthenia [Unknown]
  - Smoke sensitivity [Unknown]
  - Pharyngeal swelling [Recovering/Resolving]
  - Arthropod bite [Unknown]

NARRATIVE: CASE EVENT DATE: 2020
